FAERS Safety Report 8435361 (Version 3)
Quarter: 2012Q4

REPORT INFORMATION
  Report Type: 
  Country: US (occurrence: US)
  Receive Date: 20120301
  Receipt Date: 20121119
  Transmission Date: 20130627
  Serious: Yes (Hospitalization)
  Sender: FDA-Public Use
  Company Number: US-GLAXOSMITHKLINE-A0932383A

PATIENT
  Age: 72 Year
  Sex: Male

DRUGS (1)
  1. AVANDIA [Suspect]
     Indication: DIABETES MELLITUS
     Dosage: 4MG Per day
     Route: 048
     Dates: start: 20070430, end: 2010

REACTIONS (5)
  - Cardiac failure [Unknown]
  - Stent placement [Unknown]
  - Heart rate increased [Unknown]
  - Fatigue [Unknown]
  - Coronary artery disease [Unknown]
